FAERS Safety Report 11648340 (Version 1)
Quarter: 2015Q4

REPORT INFORMATION
  Report Type: Spontaneous
  Country: KR (occurrence: KR)
  Receive Date: 20151021
  Receipt Date: 20151021
  Transmission Date: 20160304
  Serious: Yes (Other)
  Sender: FDA-Public Use
  Company Number: KR-SUN PHARMACEUTICAL INDUSTRIES LTD-2015RR-104976

PATIENT

DRUGS (2)
  1. CARBOPLATIN. [Suspect]
     Active Substance: CARBOPLATIN
     Indication: METASTASES TO MENINGES
     Dosage: 3 CYCLES OF CHEMOTHERAPY FOR APPROXIMATELY 3 MONTHS
     Route: 065
  2. DOCETAXEL. [Suspect]
     Active Substance: DOCETAXEL
     Indication: METASTASES TO MENINGES
     Dosage: 3 CYCLES OF CHEMOTHERAPY FOR APPROXIMATELY 3 MONTHS
     Route: 065

REACTIONS (4)
  - Somnolence [None]
  - Seizure [None]
  - Cytotoxic oedema [Unknown]
  - Hydrocephalus [None]
